FAERS Safety Report 14565493 (Version 3)
Quarter: 2018Q4

REPORT INFORMATION
  Report Type: Report from Study
  Country: IT (occurrence: IT)
  Receive Date: 20180223
  Receipt Date: 20181222
  Transmission Date: 20190204
  Serious: Yes (Other)
  Sender: FDA-Public Use
  Company Number: IT-ACCORD-063751

PATIENT
  Age: 70 Year
  Sex: Male
  Weight: 84 kg

DRUGS (10)
  1. QUETIAPINE. [Suspect]
     Active Substance: QUETIAPINE
     Indication: AGITATION
     Route: 048
  2. LORAZEPAM. [Concomitant]
     Active Substance: LORAZEPAM
  3. ARIXTRA [Concomitant]
     Active Substance: FONDAPARINUX SODIUM
     Dosage: STRENGTH: 2.5 MG/0.5 ML
     Dates: start: 20180130
  4. PANTORC [Concomitant]
     Active Substance: PANTOPRAZOLE SODIUM
     Dosage: STRENGTH: 40 MG
     Dates: start: 20180126, end: 20180201
  5. METHYLPREDNISOLONE. [Concomitant]
     Active Substance: METHYLPREDNISOLONE
     Indication: BRONCHOSTENOSIS
     Dates: start: 20180130
  6. ANAFRANIL [Interacting]
     Active Substance: CLOMIPRAMINE HYDROCHLORIDE
     Indication: DEPRESSION
     Dosage: STRENGTH: 75 MG
     Route: 048
  7. FUROSEMIDE S.A.L.F. [Concomitant]
     Indication: OEDEMA PERIPHERAL
     Dosage: STRENGTH: 20 MG/2 ML
     Dates: start: 20180130
  8. OLANZAPINA TEVA [Interacting]
     Active Substance: OLANZAPINE
     Indication: DEPRESSION
     Dosage: 2.5 MG DAILY
  9. GABAPENTIN. [Concomitant]
     Active Substance: GABAPENTIN
  10. CEFTRIAXONE. [Concomitant]
     Active Substance: CEFTRIAXONE
     Indication: BRONCHITIS
     Dates: start: 20180130

REACTIONS (2)
  - Electrocardiogram QT prolonged [Unknown]
  - Drug interaction [Unknown]

NARRATIVE: CASE EVENT DATE: 20180202
